FAERS Safety Report 13976240 (Version 1)
Quarter: 2017Q3

REPORT INFORMATION
  Report Type: Spontaneous
  Country: US (occurrence: US)
  Receive Date: 20170915
  Receipt Date: 20170915
  Transmission Date: 20171128
  Serious: Yes (Other)
  Sender: FDA-Public Use
  Company Number: US-PFIZER INC-2017395379

PATIENT
  Sex: Female

DRUGS (1)
  1. IBRANCE [Suspect]
     Active Substance: PALBOCICLIB
     Indication: CONNECTIVE TISSUE NEOPLASM
     Dosage: 125 MG, CYCLIC (DAILY FOR 21 DAYS, 7 DAYS OFF)
     Route: 048
     Dates: start: 20170414

REACTIONS (2)
  - White blood cell count decreased [Unknown]
  - Product use in unapproved indication [Unknown]

NARRATIVE: CASE EVENT DATE: 20170414
